FAERS Safety Report 8323556 (Version 2)
Quarter: 2013Q1

REPORT INFORMATION
  Report Type: Spontaneous
  Country: US (occurrence: US)
  Receive Date: 20120105
  Receipt Date: 20130103
  Transmission Date: 20140127
  Serious: No
  Sender: FDA-Public Use
  Company Number: US-ABBOTT-11P-163-0714925-00

PATIENT
  Sex: Female
  Weight: 122.58 kg

DRUGS (7)
  1. SYNTHROID [Suspect]
     Indication: PRODUCT USED FOR UNKNOWN INDICATION
     Dates: start: 201003
  2. SYNTHROID [Suspect]
     Dates: start: 200804, end: 200806
  3. LEVOTHYROXINE [Suspect]
     Indication: PRODUCT USED FOR UNKNOWN INDICATION
     Dates: start: 200806, end: 201003
  4. LEXAPRO [Concomitant]
     Indication: PRODUCT USED FOR UNKNOWN INDICATION
  5. LEXAPRO [Concomitant]
     Dosage: 20 MG
  6. IRON [Concomitant]
     Indication: PRODUCT USED FOR UNKNOWN INDICATION
  7. NAPROXEN [Concomitant]
     Indication: PRODUCT USED FOR UNKNOWN INDICATION

REACTIONS (13)
  - Dysarthria [Recovered/Resolved]
  - Gait disturbance [Recovered/Resolved]
  - Cognitive disorder [Recovered/Resolved]
  - Weight increased [Not Recovered/Not Resolved]
  - Fatigue [Not Recovered/Not Resolved]
  - Pain [Not Recovered/Not Resolved]
  - Vision blurred [Not Recovered/Not Resolved]
  - Memory impairment [Not Recovered/Not Resolved]
  - Cardiac flutter [Not Recovered/Not Resolved]
  - Hair colour changes [Not Recovered/Not Resolved]
  - Tremor [Not Recovered/Not Resolved]
  - Laboratory test [Not Recovered/Not Resolved]
  - Feeling abnormal [Unknown]
